FAERS Safety Report 15001791 (Version 1)
Quarter: 2018Q2

REPORT INFORMATION
  Report Type: Report from Study
  Country: US (occurrence: US)
  Receive Date: 20180612
  Receipt Date: 20180612
  Transmission Date: 20180711
  Serious: Yes (Death, Hospitalization)
  Sender: FDA-Public Use
  Company Number: US-ASTRAZENECA-2018SE71158

PATIENT
  Age: 27079 Day
  Sex: Female

DRUGS (1)
  1. TAGRISSO [Suspect]
     Active Substance: OSIMERTINIB
     Indication: LUNG CARCINOMA CELL TYPE UNSPECIFIED STAGE 0
     Route: 048
     Dates: start: 20180511

REACTIONS (4)
  - Death [Fatal]
  - Femur fracture [Unknown]
  - Respiratory rate increased [Unknown]
  - Fall [Unknown]

NARRATIVE: CASE EVENT DATE: 20180522
